FAERS Safety Report 12444031 (Version 1)
Quarter: 2016Q2

REPORT INFORMATION
  Report Type: Spontaneous
  Country: US (occurrence: US)
  Receive Date: 20160607
  Receipt Date: 20160607
  Transmission Date: 20160815
  Serious: No
  Sender: FDA-Public Use
  Company Number: US-SA-2016SA079572

PATIENT
  Age: 59 Year
  Sex: Male

DRUGS (2)
  1. SOLOSTAR [Concomitant]
     Active Substance: DEVICE
     Dosage: DOSE:50 UNIT(S)
     Dates: start: 201604, end: 20160418
  2. TOUJEO [Suspect]
     Active Substance: INSULIN GLARGINE
     Indication: TYPE 2 DIABETES MELLITUS
     Dosage: DOSE:50 UNIT(S)
     Route: 065
     Dates: start: 201604, end: 20160418

REACTIONS (5)
  - Oedema [Unknown]
  - Weight increased [Unknown]
  - Peripheral swelling [Unknown]
  - Dry skin [Unknown]
  - Drug ineffective [Unknown]
